FAERS Safety Report 11415054 (Version 1)
Quarter: 2015Q3

REPORT INFORMATION
  Report Type: Report from Study
  Country: RS (occurrence: RS)
  Receive Date: 20150825
  Receipt Date: 20150825
  Transmission Date: 20151125
  Serious: Yes (Other)
  Sender: FDA-Public Use
  Company Number: RS-ROCHE-1622377

PATIENT

DRUGS (14)
  1. PROPOFOL. [Suspect]
     Active Substance: PROPOFOL
     Indication: STATUS EPILEPTICUS
     Route: 065
  2. PHENYTOIN. [Suspect]
     Active Substance: PHENYTOIN
     Indication: STATUS EPILEPTICUS
     Route: 065
  3. LEVETIRACETAM. [Suspect]
     Active Substance: LEVETIRACETAM
     Indication: STATUS EPILEPTICUS
     Route: 065
  4. MIDAZOLAM [Suspect]
     Active Substance: MIDAZOLAM\MIDAZOLAM HYDROCHLORIDE
     Indication: STATUS EPILEPTICUS
     Route: 042
  5. CLOBAZAM [Suspect]
     Active Substance: CLOBAZAM
     Indication: STATUS EPILEPTICUS
     Route: 065
  6. DIAZEPAM. [Suspect]
     Active Substance: DIAZEPAM
     Indication: STATUS EPILEPTICUS
     Route: 065
  7. LORAZEPAM. [Suspect]
     Active Substance: LORAZEPAM
     Indication: STATUS EPILEPTICUS
     Route: 065
  8. VALPROATE SODIUM. [Suspect]
     Active Substance: VALPROATE SODIUM
     Indication: STATUS EPILEPTICUS
     Route: 065
  9. THIOPENTAL SODIUM. [Suspect]
     Active Substance: THIOPENTAL SODIUM
     Indication: STATUS EPILEPTICUS
     Route: 065
  10. LIDOCAINE. [Suspect]
     Active Substance: LIDOCAINE
     Indication: STATUS EPILEPTICUS
     Route: 065
  11. CLONAZEPAM. [Suspect]
     Active Substance: CLONAZEPAM
     Indication: STATUS EPILEPTICUS
     Route: 065
  12. PHENOBARBITAL. [Suspect]
     Active Substance: PHENOBARBITAL
     Indication: STATUS EPILEPTICUS
     Route: 065
  13. KETAMINE [Suspect]
     Active Substance: KETAMINE
     Indication: STATUS EPILEPTICUS
     Route: 065
  14. CHLORAL HYDRATE [Suspect]
     Active Substance: CHLORAL HYDRATE
     Indication: STATUS EPILEPTICUS
     Route: 065

REACTIONS (6)
  - Depressed level of consciousness [Unknown]
  - Cardiovascular insufficiency [Unknown]
  - Acute respiratory distress syndrome [Unknown]
  - Tachyphylaxis [Unknown]
  - Respiratory disorder [Unknown]
  - Respiratory depression [Unknown]
